FAERS Safety Report 9034356 (Version 2)
Quarter: 2013Q1

REPORT INFORMATION
  Report Type: Spontaneous
  Country: US (occurrence: None)
  Receive Date: 20130111
  Receipt Date: 20130129
  Transmission Date: 20140127
  Serious: Yes (Hospitalization)
  Sender: FDA-Public Use
  Company Number: 2012-1616

PATIENT
  Age: 76 Year
  Sex: Male

DRUGS (4)
  1. KYPROLIS (CARFILZOMIB) (INJECTION FOR INFUSION) (CARFILZOMIB) [Suspect]
     Indication: PLASMA CELL MYELOMA
     Dosage: 2 IN 1 WK, INTRAVENOUS
     Route: 042
     Dates: start: 201210
  2. ZOMETTA (ZOLEDRONIC ACID) (ZOLEDRONIC ACID) [Concomitant]
  3. DEXAMETHASONE (DEXAMETHASONE) (DEXAMETHASONE) [Concomitant]
  4. GABAPENTIN (GABAPENTIN) (GABAPENTIN) [Concomitant]

REACTIONS (7)
  - Cerebrovascular accident [None]
  - Dysarthria [None]
  - Confusional state [None]
  - VIIth nerve paralysis [None]
  - Hyperlipidaemia [None]
  - Insomnia [None]
  - Plasma cell myeloma [None]
